FAERS Safety Report 6979408-6 (Version None)
Quarter: 2010Q3

REPORT INFORMATION
  Report Type: 
  Country: None (occurrence: None)
  Receive Date: 20100910
  Receipt Date: 20100910
  Transmission Date: 20110219
  Serious: Yes (Other)
  Sender: FDA-Public Use
  Company Number: None

PATIENT
  Age: 44 Year
  Sex: Female
  Weight: 58.9676 kg

DRUGS (2)
  1. CYMBALTA [Suspect]
     Dosage: 60 MG 1X DAY OCT. 2008 90 MG 1X DAY JANUARY 2009 120 MG 1X DAY APRIL 2009
  2. WELLBUTRIN [Suspect]
     Dosage: 150 MG

REACTIONS (24)
  - AGGRESSION [None]
  - AGITATION [None]
  - ANGER [None]
  - APHASIA [None]
  - ASTHENIA [None]
  - CRYING [None]
  - DECREASED APPETITE [None]
  - DEPRESSION [None]
  - DIZZINESS [None]
  - DRUG INEFFECTIVE [None]
  - DYSKINESIA [None]
  - EYE SWELLING [None]
  - HYPERSOMNIA [None]
  - INSOMNIA [None]
  - LACK OF SPONTANEOUS SPEECH [None]
  - MOOD ALTERED [None]
  - PAIN [None]
  - PARAESTHESIA [None]
  - PERIPHERAL COLDNESS [None]
  - SKIN WARM [None]
  - SOCIAL AVOIDANT BEHAVIOUR [None]
  - SUICIDAL IDEATION [None]
  - THINKING ABNORMAL [None]
  - VISION BLURRED [None]
